FAERS Safety Report 12798625 (Version 2)
Quarter: 2016Q4

REPORT INFORMATION
  Report Type: Spontaneous
  Country: TR (occurrence: TR)
  Receive Date: 20160930
  Receipt Date: 20161007
  Transmission Date: 20170207
  Serious: Yes (Other)
  Sender: FDA-Public Use
  Company Number: TR-PFIZER INC-2016457289

PATIENT
  Age: 10 Year
  Sex: Male

DRUGS (4)
  1. CYCLOPHOSPHAMIDE. [Suspect]
     Active Substance: CYCLOPHOSPHAMIDE
     Indication: B PRECURSOR TYPE ACUTE LEUKAEMIA
     Dosage: 1000 MG/M2/DAY (INDUCTION THERAPY)
  2. VINCRISTINE [Suspect]
     Active Substance: VINCRISTINE
     Indication: B PRECURSOR TYPE ACUTE LEUKAEMIA
     Dosage: 1.5 MG/M2/DAY (INDUCTION THERAPY)
  3. METHOTREXATE. [Suspect]
     Active Substance: METHOTREXATE
     Indication: B PRECURSOR TYPE ACUTE LEUKAEMIA
     Dosage: 1 G/M2/DAY (CONSOLIDATION THERAPY); HIGH-DOSE
  4. MERCAPTOPURINE. [Concomitant]
     Active Substance: MERCAPTOPURINE
     Indication: B PRECURSOR TYPE ACUTE LEUKAEMIA
     Dosage: 25 MG/M2/DAY (CONSOLIDATION THERAPY)

REACTIONS (4)
  - Malnutrition [Unknown]
  - Wernicke^s encephalopathy [Recovered/Resolved]
  - Vomiting [Unknown]
  - Inappropriate antidiuretic hormone secretion [Unknown]
